FAERS Safety Report 4740343-5 (Version None)
Quarter: 2005Q3

REPORT INFORMATION
  Report Type: 
  Country: None (occurrence: None)
  Receive Date: 20050809
  Receipt Date: 20050809
  Transmission Date: 20060218
  Serious: Yes (Disabling)
  Sender: FDA-Public Use
  Company Number: None

PATIENT
  Age: 43 Year
  Sex: Male
  Weight: 125.1928 kg

DRUGS (8)
  1. LAMICTAL [Suspect]
     Indication: MAJOR DEPRESSION
     Dosage: 25 MG PO QD ORAL
     Route: 048
     Dates: start: 20050623, end: 20050703
  2. WELLBUTRIN XL [Concomitant]
  3. INSULIN [Concomitant]
  4. VIAGRA [Concomitant]
  5. NEXIUM [Concomitant]
  6. VENTOLIN [Concomitant]
  7. ADVAIR DISKUS 100/50 [Concomitant]
  8. LOTENSIN [Concomitant]

REACTIONS (3)
  - ORAL MUCOSAL EXFOLIATION [None]
  - RASH [None]
  - SKIN EXFOLIATION [None]
